FAERS Safety Report 4899467-4 (Version None)
Quarter: 2006Q1

REPORT INFORMATION
  Report Type: 
  Country: None (occurrence: None)
  Receive Date: 20060131
  Receipt Date: 20060117
  Transmission Date: 20060701
  Serious: Yes (Other)
  Sender: FDA-Public Use
  Company Number: SUS1-2006-00085

PATIENT
  Sex: Female

DRUGS (1)
  1. PENTASA (MESALAZINE)  CR [Suspect]
     Indication: COLITIS ULCERATIVE

REACTIONS (1)
  - NEPHROPATHY [None]
